FAERS Safety Report 21591897 (Version 3)
Quarter: 2023Q1

REPORT INFORMATION
  Report Type: Spontaneous
  Country: IN (occurrence: IN)
  Receive Date: 20221114
  Receipt Date: 20230120
  Transmission Date: 20230417
  Serious: Yes (Other)
  Sender: FDA-Public Use
  Company Number: IN-PFIZER INC-PV202200101628

PATIENT
  Age: 70 Year
  Sex: Female

DRUGS (7)
  1. AROMASIN [Suspect]
     Active Substance: EXEMESTANE
     Dosage: 25 MG, 1X/DAY
     Route: 048
  2. DENOSUMAB [Concomitant]
     Active Substance: DENOSUMAB
     Dosage: 60 MG (STAT)
     Route: 058
  3. TELVAS [Concomitant]
     Dosage: 40, 1X/DAY
  4. CALCIUM CARBONATE\CHOLECALCIFEROL [Concomitant]
     Active Substance: CALCIUM CARBONATE\CHOLECALCIFEROL
     Dosage: 1 DF, 1X/DAY
  5. NEKSIUM [Concomitant]
     Dosage: 40 MG, 1X/DAY (EMPTY STOMACH)
  6. LYRICA [Concomitant]
     Active Substance: PREGABALIN
     Dosage: 75 MG, 1X/DAY (AT NIGHT)
  7. ETIZOLAM [Concomitant]
     Active Substance: ETIZOLAM
     Dosage: 0.25 MG, 1X/DAY (AT BEDTIME)

REACTIONS (3)
  - Thoracic vertebral fracture [Unknown]
  - Fall [Unknown]
  - Mobility decreased [Unknown]
